FAERS Safety Report 14319042 (Version 9)
Quarter: 2020Q1

REPORT INFORMATION
  Report Type: Report from Study
  Country: US (occurrence: US)
  Receive Date: 20171222
  Receipt Date: 20200326
  Transmission Date: 20200409
  Serious: Yes (Hospitalization, Other)
  Sender: FDA-Public Use
  Company Number: US-ACTELION-A-NJ2017-164483

PATIENT
  Age: 52 Year
  Sex: Female
  Weight: 109.3 kg

DRUGS (14)
  1. PHENERGAN [Concomitant]
     Active Substance: PROMETHAZINE HYDROCHLORIDE
  2. OPSUMIT [Suspect]
     Active Substance: MACITENTAN
     Indication: PULMONARY ARTERIAL HYPERTENSION
     Dosage: 10 MG, QD
     Route: 048
  3. VELETRI [Suspect]
     Active Substance: EPOPROSTENOL
     Dosage: 35.8 NG/KG, PER MIN
     Route: 042
     Dates: start: 2015
  4. ELIQUIS [Concomitant]
     Active Substance: APIXABAN
     Dosage: UNK
  5. ZOFRAN [Concomitant]
     Active Substance: ONDANSETRON HYDROCHLORIDE
     Dosage: UNK
  6. AMIODARONE [Concomitant]
     Active Substance: AMIODARONE
     Dosage: UNK
  7. SYNTHROID [Concomitant]
     Active Substance: LEVOTHYROXINE SODIUM
     Dosage: UNK
  8. VELETRI [Suspect]
     Active Substance: EPOPROSTENOL
     Indication: PULMONARY ARTERIAL HYPERTENSION
     Dosage: 33.5 NG/KG, PER MIN
     Route: 042
  9. NEUROTIN [Concomitant]
     Active Substance: GABAPENTIN
     Dosage: UNK
  10. CREON [Concomitant]
     Active Substance: PANCRELIPASE AMYLASE\PANCRELIPASE LIPASE\PANCRELIPASE PROTEASE
  11. VELETRI [Suspect]
     Active Substance: EPOPROSTENOL
     Dosage: 39.5 NG/KG, PER MIN
     Route: 042
  12. LASIX [Concomitant]
     Active Substance: FUROSEMIDE
     Dosage: UNK
  13. VELETRI [Suspect]
     Active Substance: EPOPROSTENOL
     Dosage: 35.5 NG/KG, PER MIN
     Route: 042
  14. ALDACTONE [Concomitant]
     Active Substance: SPIRONOLACTONE
     Dosage: UNK

REACTIONS (32)
  - Generalised oedema [Recovered/Resolved]
  - Flushing [Unknown]
  - Weight decreased [Recovered/Resolved]
  - Hepatitis C [Recovered/Resolved]
  - Abdominal discomfort [Not Recovered/Not Resolved]
  - Rash [Recovered/Resolved]
  - Hepatic fibrosis [Unknown]
  - Anaemia [Recovered/Resolved]
  - Headache [Unknown]
  - Dyspnoea exertional [Not Recovered/Not Resolved]
  - Orthopnoea [Not Recovered/Not Resolved]
  - Hypokalaemia [Recovered/Resolved]
  - Thrombocytopenia [Recovered/Resolved]
  - Limb injury [Unknown]
  - Vomiting [Recovered/Resolved]
  - Lower limb fracture [Recovered/Resolved]
  - Hyperbilirubinaemia [Recovered/Resolved]
  - Pancreatitis [Recovered/Resolved]
  - Sleep apnoea syndrome [Recovered/Resolved]
  - Biliary dilatation [Unknown]
  - Irritable bowel syndrome [Recovered/Resolved]
  - Right ventricular failure [Recovered/Resolved]
  - Pulmonary hypertension [Recovered/Resolved]
  - Dyspepsia [Not Recovered/Not Resolved]
  - Pancreatolithiasis [Recovered/Resolved]
  - Dyspnoea [Not Recovered/Not Resolved]
  - Atrial fibrillation [Recovered/Resolved]
  - Diarrhoea [Unknown]
  - Fall [Recovered/Resolved]
  - Abdominal pain [Recovered/Resolved]
  - Chronic kidney disease [Recovered/Resolved]
  - Nausea [Unknown]

NARRATIVE: CASE EVENT DATE: 20150818
